FAERS Safety Report 19170134 (Version 9)
Quarter: 2024Q4

REPORT INFORMATION
  Report Type: Report from Study
  Country: DO (occurrence: DO)
  Receive Date: 20210422
  Receipt Date: 20241029
  Transmission Date: 20250115
  Serious: Yes (Other)
  Sender: NOVARTIS
  Company Number: NVSC2021DO083550

PATIENT
  Age: 58 Year
  Sex: Female

DRUGS (3)
  1. SECUKINUMAB [Suspect]
     Active Substance: SECUKINUMAB
     Indication: Ankylosing spondylitis
     Dosage: 150 MG, QMO
     Route: 058
     Dates: start: 20200819
  2. SECUKINUMAB [Suspect]
     Active Substance: SECUKINUMAB
     Dosage: 150 MG, QMO
     Route: 058
     Dates: start: 20201119
  3. SECUKINUMAB [Suspect]
     Active Substance: SECUKINUMAB
     Dosage: 150 MG, QMO
     Route: 058
     Dates: start: 20210719

REACTIONS (16)
  - Kidney infection [Unknown]
  - Breast cyst [Unknown]
  - Pain [Not Recovered/Not Resolved]
  - Peripheral swelling [Not Recovered/Not Resolved]
  - Feeling abnormal [Unknown]
  - Urinary tract infection [Not Recovered/Not Resolved]
  - Arthritis [Recovering/Resolving]
  - Joint swelling [Recovering/Resolving]
  - Infection [Recovered/Resolved]
  - Influenza [Recovering/Resolving]
  - Pyrexia [Recovering/Resolving]
  - Lower limb fracture [Not Recovered/Not Resolved]
  - Fall [Not Recovered/Not Resolved]
  - Tendon rupture [Unknown]
  - Skin lesion [Unknown]
  - Product dose omission issue [Unknown]

NARRATIVE: CASE EVENT DATE: 20210621
